FAERS Safety Report 6901872-9 (Version None)
Quarter: 2010Q3

REPORT INFORMATION
  Report Type: 
  Country: None (occurrence: None)
  Receive Date: 20100803
  Receipt Date: 20080326
  Transmission Date: 20110219
  Serious: No
  Sender: FDA-Public Use
  Company Number: US-PFIZER INC-2008027273

PATIENT
  Sex: Female

DRUGS (5)
  1. LYRICA [Suspect]
     Dates: start: 20070601
  2. AMITRIPTYLINE HYDROCHLORIDE [Concomitant]
  3. FUROSEMIDE [Concomitant]
  4. CALCIUM CHLORIDE [Concomitant]
  5. MORPHINE [Concomitant]

REACTIONS (1)
  - WEIGHT INCREASED [None]
